FAERS Safety Report 13560928 (Version 1)
Quarter: 2017Q2

REPORT INFORMATION
  Report Type: Spontaneous
  Country: US (occurrence: US)
  Receive Date: 20170518
  Receipt Date: 20170518
  Transmission Date: 20170830
  Serious: No
  Sender: FDA-Public Use
  Company Number: US-TELIGENT, INC-IGIL20170206

PATIENT
  Age: 68 Year
  Sex: Male

DRUGS (2)
  1. LIDOCAINE HYDROCHLORIDE TOPICAL SOLUTION, 4% [Suspect]
     Active Substance: LIDOCAINE HYDROCHLORIDE
     Indication: BLADDER CANCER
     Dosage: UNKNOWN
     Route: 066
  2. BCG [Concomitant]
     Active Substance: BCG VACCINE
     Indication: BLADDER CANCER
     Dosage: UNKNOWN
     Route: 065

REACTIONS (1)
  - Drug screen positive [Not Recovered/Not Resolved]
